FAERS Safety Report 19421473 (Version 1)
Quarter: 2021Q2

REPORT INFORMATION
  Report Type: Spontaneous
  Country: US (occurrence: US)
  Receive Date: 20210616
  Receipt Date: 20210616
  Transmission Date: 20210717
  Serious: No
  Sender: FDA-Public Use
  Company Number: US-JNJFOC-20210612672

PATIENT
  Age: 73 Year

DRUGS (1)
  1. ZYRTEC [Suspect]
     Active Substance: CETIRIZINE HYDROCHLORIDE
     Indication: MIDDLE EAR EFFUSION
     Route: 065

REACTIONS (3)
  - Somnolence [Unknown]
  - Insomnia [Unknown]
  - Product use in unapproved indication [Unknown]
